FAERS Safety Report 9796599 (Version 3)
Quarter: 2014Q1

REPORT INFORMATION
  Report Type: Report from Study
  Country: US (occurrence: US)
  Receive Date: 20140103
  Receipt Date: 20140306
  Transmission Date: 20141002
  Serious: Yes (Hospitalization)
  Sender: FDA-Public Use
  Company Number: US-BRISTOL-MYERS SQUIBB COMPANY-19946599

PATIENT
  Age: 70 Year
  Sex: Male
  Weight: 91.6 kg

DRUGS (3)
  1. BLINDED: NIVOLUMAB [Suspect]
     Indication: METASTATIC MALIGNANT MELANOMA
     Route: 042
     Dates: start: 20131115, end: 20131204
  2. IPILIMUMAB [Suspect]
     Indication: METASTATIC MALIGNANT MELANOMA
     Route: 042
     Dates: start: 20131115, end: 20131204
  3. BLINDED: PLACEBO [Suspect]
     Indication: METASTATIC MALIGNANT MELANOMA
     Route: 042
     Dates: start: 20131115, end: 20131204

REACTIONS (1)
  - Diarrhoea [Recovered/Resolved]
